FAERS Safety Report 11320189 (Version 3)
Quarter: 2015Q3

REPORT INFORMATION
  Report Type: Spontaneous
  Country: UA (occurrence: UA)
  Receive Date: 20150729
  Receipt Date: 20150812
  Transmission Date: 20151125
  Serious: Yes (Hospitalization)
  Sender: FDA-Public Use
  Company Number: UA-SA-2015SA107112

PATIENT
  Age: 23 Year
  Sex: Female
  Weight: 60 kg

DRUGS (1)
  1. LANTUS [Suspect]
     Active Substance: INSULIN GLARGINE
     Indication: DIABETES MELLITUS
     Route: 058

REACTIONS (5)
  - Coordination abnormal [Recovered/Resolved]
  - Chills [Recovered/Resolved]
  - Speech disorder [Recovered/Resolved]
  - Hypoglycaemic coma [Recovered/Resolved]
  - Asthenia [Recovered/Resolved]

NARRATIVE: CASE EVENT DATE: 2011
